FAERS Safety Report 9369347 (Version 2)
Quarter: 2014Q1

REPORT INFORMATION
  Report Type: Spontaneous
  Country: BR (occurrence: BR)
  Receive Date: 20130626
  Receipt Date: 20140228
  Transmission Date: 20141002
  Serious: No
  Sender: FDA-Public Use
  Company Number: BR-ROCHE-1239019

PATIENT
  Sex: Female
  Weight: 48 kg

DRUGS (1)
  1. ROACCUTANE [Suspect]
     Indication: ACNE
     Route: 048
     Dates: start: 201209, end: 201303

REACTIONS (2)
  - Pregnancy [Unknown]
  - No adverse event [Unknown]
